FAERS Safety Report 11082739 (Version 1)
Quarter: 2015Q2

REPORT INFORMATION
  Report Type: Report from Study
  Country: US (occurrence: US)
  Receive Date: 20150501
  Receipt Date: 20150501
  Transmission Date: 20150821
  Serious: No
  Sender: FDA-Public Use
  Company Number: US-ABBVIE-14P-163-1232427-00

PATIENT
  Sex: Female

DRUGS (1)
  1. ANDROGEL [Suspect]
     Active Substance: TESTOSTERONE
     Indication: PRODUCT USED FOR UNKNOWN INDICATION
     Dosage: THROUGH POSSIBLE SECONDARY TRANSFER
     Route: 062

REACTIONS (2)
  - Accidental exposure to product [Not Recovered/Not Resolved]
  - Alopecia [Not Recovered/Not Resolved]
